FAERS Safety Report 5702753-9 (Version None)
Quarter: 2008Q2

REPORT INFORMATION
  Report Type: 
  Country: None (occurrence: None)
  Receive Date: 20080411
  Receipt Date: 20080331
  Transmission Date: 20081010
  Serious: Yes (Life-Threatening, Hospitalization)
  Sender: FDA-Public Use
  Company Number: B0515135A

PATIENT
  Age: 78 Year
  Sex: Female

DRUGS (6)
  1. AUGMENTIN '125' [Suspect]
     Indication: HYPERTHERMIA
     Dosage: 1G TWICE PER DAY
     Route: 048
     Dates: start: 20080214, end: 20080218
  2. REVLIMID [Suspect]
     Dosage: 10MG PER DAY
     Route: 048
     Dates: start: 20080201, end: 20080218
  3. PREVISCAN [Suspect]
     Dosage: 20MG PER DAY
     Route: 048
     Dates: start: 20080201, end: 20080218
  4. DEXAMETHASONE [Suspect]
  5. DEROXAT [Concomitant]
     Indication: DRUG USE FOR UNKNOWN INDICATION
     Route: 048
  6. DOLIPRANE [Concomitant]
     Indication: HYPERTHERMIA
     Route: 065
     Dates: start: 20080214

REACTIONS (7)
  - COMPLEMENT FACTOR DECREASED [None]
  - HYPOCALCAEMIA [None]
  - HYPONATRAEMIA [None]
  - PROTEINURIA [None]
  - PYREXIA [None]
  - RENAL FAILURE ACUTE [None]
  - RENAL IMPAIRMENT [None]
